FAERS Safety Report 5590201-1 (Version None)
Quarter: 2008Q1

REPORT INFORMATION
  Report Type: 
  Country: None (occurrence: None)
  Receive Date: 20080114
  Receipt Date: 20080110
  Transmission Date: 20080703
  Serious: Yes (Other)
  Sender: FDA-Public Use
  Company Number: US-ASTRAZENECA-2008UW00685

PATIENT
  Age: 66 Year
  Sex: Male
  Weight: 95.3 kg

DRUGS (9)
  1. CASODEX [Suspect]
     Indication: PROSTATE CANCER
     Route: 048
     Dates: start: 20070301, end: 20071101
  2. ASPIRIN [Concomitant]
  3. VITAMIN CAP [Concomitant]
  4. MICARDIS [Concomitant]
  5. HYDROCHLOROTHIAZIDE [Concomitant]
     Dosage: 80/25
  6. OMEPRAZOLE [Concomitant]
     Route: 048
  7. LIPITOR [Concomitant]
  8. CYCLOBENZAPRINE HCL [Concomitant]
  9. LAMICTAL [Concomitant]

REACTIONS (3)
  - BREAST PAIN [None]
  - BREAST TENDERNESS [None]
  - PROSTATECTOMY [None]
